FAERS Safety Report 10347071 (Version 1)
Quarter: 2014Q3

REPORT INFORMATION
  Report Type: Spontaneous
  Country: US (occurrence: None)
  Receive Date: 20140725
  Receipt Date: 20140725
  Transmission Date: 20150326
  Serious: Yes (Other)
  Sender: FDA-Public Use
  Company Number: None

PATIENT
  Age: 40 Year
  Sex: Female
  Weight: 117.94 kg

DRUGS (1)
  1. SULFAMETHOXAZOLE/TRIMETHOPRIM 800-160 MG A-S MEDICATION SOLUTIONS [Suspect]
     Active Substance: SULFAMETHOXAZOLE\TRIMETHOPRIM
     Indication: CYSTITIS
     Dosage: 1 PILL  TWICE DAILY TAKEN BY  MOUTH
     Route: 048
     Dates: start: 20140724, end: 20140724

REACTIONS (5)
  - Urticaria [None]
  - Throat irritation [None]
  - Dyspnoea [None]
  - Pruritus [None]
  - Oropharyngeal pain [None]

NARRATIVE: CASE EVENT DATE: 20140724
